FAERS Safety Report 8076292-7 (Version None)
Quarter: 2012Q1

REPORT INFORMATION
  Report Type: 
  Country: None (occurrence: None)
  Receive Date: 20120123
  Receipt Date: 20120110
  Transmission Date: 20120608
  Serious: Yes (Hospitalization, Other)
  Sender: FDA-Public Use
  Company Number: 2011SP049984

PATIENT
  Age: 62 Year
  Sex: Male
  Weight: 70.3983 kg

DRUGS (12)
  1. OMEPRAZOLE [Concomitant]
  2. HYDROCHLOROTHIAZIDE [Concomitant]
  3. FLOVENT [Concomitant]
  4. LISINOPRIL [Concomitant]
  5. SPIRIVA [Concomitant]
  6. VICTRELIS [Suspect]
     Indication: HEPATITIS C
     Dosage: 800 MG, TID, PO
     Route: 048
     Dates: start: 20110919, end: 20110928
  7. RIBAVIRIN [Suspect]
     Indication: HEPATITIS C
     Dosage: 600 MG, BID, PO
     Route: 048
     Dates: start: 20110814, end: 20111020
  8. PEG-INTRON [Suspect]
     Indication: HEPATITIS C
     Dosage: 150 MCG, QW, SC
     Route: 058
     Dates: start: 20110814, end: 20111020
  9. LOVASTATIN [Concomitant]
  10. ASPIRIN [Concomitant]
  11. NIACIN [Concomitant]
  12. PROAIR HFA [Concomitant]

REACTIONS (8)
  - ANAEMIA [None]
  - GASTROOESOPHAGEAL REFLUX DISEASE [None]
  - DYSPNOEA [None]
  - CHRONIC OBSTRUCTIVE PULMONARY DISEASE [None]
  - ERUCTATION [None]
  - ABDOMINAL PAIN UPPER [None]
  - SMALL INTESTINAL OBSTRUCTION [None]
  - MUSCLE SPASMS [None]
